FAERS Safety Report 5704398-3 (Version None)
Quarter: 2008Q2

REPORT INFORMATION
  Report Type: 
  Country: None (occurrence: None)
  Receive Date: 20080414
  Receipt Date: 20080403
  Transmission Date: 20081010
  Serious: Yes (Congenital Anomaly)
  Sender: FDA-Public Use
  Company Number: B0499945B

PATIENT
  Sex: Male

DRUGS (10)
  1. ZOFRAN [Suspect]
     Dosage: 4MG UNKNOWN
     Dates: start: 20070816, end: 20071129
  2. FLUOXETINE [Concomitant]
     Dosage: 20MG PER DAY
     Dates: start: 20070312, end: 20070909
  3. PROCHLORPERAZINE [Concomitant]
     Dosage: 5MG PER DAY
     Dates: start: 20070529
  4. VOLTAREN [Concomitant]
     Dosage: 50MG PER DAY
     Dates: start: 20070710
  5. PROCHLORPERAZINE MALEATE [Concomitant]
     Dosage: 3MG PER DAY
     Dates: start: 20070723
  6. PROMETHAZINE [Concomitant]
     Dosage: 25MG PER DAY
     Dates: start: 20070727
  7. GLYCEROL SUPPOSITORIES [Concomitant]
     Dates: start: 20070905
  8. OMEPRAZOLE [Concomitant]
     Dosage: 20MG PER DAY
     Dates: start: 20071005
  9. GAVISCON [Concomitant]
     Dosage: 250ML PER DAY
     Dates: start: 20071005
  10. FERROUS FUMERATE + FOLIC ACID [Concomitant]
     Dates: start: 20071129

REACTIONS (2)
  - DRUG EXPOSURE DURING PREGNANCY [None]
  - TALIPES [None]
